FAERS Safety Report 11194206 (Version 1)
Quarter: 2015Q2

REPORT INFORMATION
  Report Type: Spontaneous
  Country: US (occurrence: US)
  Receive Date: 20150616
  Receipt Date: 20150616
  Transmission Date: 20150821
  Serious: Yes (Death, Other)
  Sender: FDA-Public Use
  Company Number: US-PFIZER INC-2015196906

PATIENT
  Age: 70 Year
  Sex: Male
  Weight: 59 kg

DRUGS (5)
  1. REVATIO [Suspect]
     Active Substance: SILDENAFIL CITRATE
     Indication: SCLERODERMA
     Dosage: 12 DF, DAILY (FOUR 20MG TABLETS THREE TIMES A DAY)
  2. OMEPRAZOLE. [Concomitant]
     Active Substance: OMEPRAZOLE
     Dosage: UNK
  3. LETAIRIS [Concomitant]
     Active Substance: AMBRISENTAN
     Dosage: 1 DF, 1X/DAY
  4. SPIRONOLACTONE. [Concomitant]
     Active Substance: SPIRONOLACTONE
     Indication: RENAL DISORDER
     Dosage: UNK
  5. MIRTAZAPINE. [Concomitant]
     Active Substance: MIRTAZAPINE
     Indication: SLEEP DISORDER
     Dosage: 15 MG, 1X/DAY (ONCE A DAY AT NIGHT)

REACTIONS (9)
  - Liver disorder [Unknown]
  - Disease progression [Unknown]
  - CREST syndrome [Fatal]
  - Temperature intolerance [Unknown]
  - Cardiac disorder [Unknown]
  - Weight decreased [Unknown]
  - Renal disorder [Unknown]
  - Prescribed overdose [Unknown]
  - Product use issue [Unknown]
